FAERS Safety Report 23516233 (Version 1)
Quarter: 2024Q1

REPORT INFORMATION
  Report Type: Spontaneous
  Country: FR (occurrence: None)
  Receive Date: 20240213
  Receipt Date: 20240213
  Transmission Date: 20240409
  Serious: Yes (Hospitalization)
  Sender: FDA-Public Use
  Company Number: 2024A029040

PATIENT
  Age: 76 Year
  Sex: Male
  Weight: 55.8 kg

DRUGS (1)
  1. IMFINZI [Suspect]
     Active Substance: DURVALUMAB
     Indication: Lung carcinoma cell type unspecified stage III
     Dosage: 50MG/ML
     Route: 042
     Dates: start: 20231215, end: 20231215

REACTIONS (3)
  - Hypoxia [Recovering/Resolving]
  - Acute respiratory distress syndrome [Recovering/Resolving]
  - Interstitial lung disease [Not Recovered/Not Resolved]

NARRATIVE: CASE EVENT DATE: 20240112
